FAERS Safety Report 15337394 (Version 1)
Quarter: 2018Q3

REPORT INFORMATION
  Report Type: Spontaneous
  Country: US (occurrence: US)
  Receive Date: 20180831
  Receipt Date: 20180831
  Transmission Date: 20181010
  Serious: No
  Sender: FDA-Public Use
  Company Number: US-ELI_LILLY_AND_COMPANY-US201808013064

PATIENT
  Age: 69 Year
  Sex: Female

DRUGS (1)
  1. VERZENIO [Suspect]
     Active Substance: ABEMACICLIB
     Indication: METASTASES TO LUNG
     Dosage: 150 MG, UNKNOWN
     Route: 065

REACTIONS (5)
  - Dizziness [Unknown]
  - Diarrhoea [Unknown]
  - Fatigue [Unknown]
  - Off label use [Unknown]
  - Muscle spasms [Unknown]
